FAERS Safety Report 10485917 (Version 1)
Quarter: 2014Q4

REPORT INFORMATION
  Report Type: Spontaneous
  Country: DE (occurrence: DE)
  Receive Date: 20141001
  Receipt Date: 20141001
  Transmission Date: 20150528
  Serious: Yes (Congenital Anomaly, Other)
  Sender: FDA-Public Use
  Company Number: DE-UCBSA-2014012888

PATIENT
  Sex: Male
  Weight: 2.4 kg

DRUGS (2)
  1. MISOPROSTOL. [Concomitant]
     Active Substance: MISOPROSTOL
     Indication: LABOUR INDUCTION
     Dosage: UNK
     Route: 064
     Dates: start: 20140228, end: 20140228
  2. LEVETIRACETAM. [Suspect]
     Active Substance: LEVETIRACETAM
     Indication: EPILEPSY
     Dosage: DAILY DOSE: 2000MG
     Route: 064
     Dates: start: 20130716, end: 20131014

REACTIONS (3)
  - Foetal exposure during pregnancy [Unknown]
  - Congenital hydrocephalus [Not Recovered/Not Resolved]
  - Stillbirth [Unknown]

NARRATIVE: CASE EVENT DATE: 20130716
